FAERS Safety Report 7851755-5 (Version None)
Quarter: 2011Q4

REPORT INFORMATION
  Report Type: 
  Country: None (occurrence: None)
  Receive Date: 20111026
  Receipt Date: 20111020
  Transmission Date: 20120403
  Serious: Yes (Other)
  Sender: FDA-Public Use
  Company Number: US-JNJFOC-20111003884

PATIENT
  Age: 69 Year
  Sex: Female

DRUGS (2)
  1. MOTRIN IB [Suspect]
     Indication: PRODUCT USED FOR UNKNOWN INDICATION
     Route: 048
     Dates: start: 20100901, end: 20100904
  2. MOTRIN IB [Suspect]
     Route: 048

REACTIONS (6)
  - PAIN IN EXTREMITY [None]
  - PRODUCT ODOUR ABNORMAL [None]
  - LOSS OF CONSCIOUSNESS [None]
  - NAUSEA [None]
  - FALL [None]
  - THIRST [None]
